FAERS Safety Report 8376337-0 (Version None)
Quarter: 2012Q2

REPORT INFORMATION
  Report Type: 
  Country: None (occurrence: None)
  Receive Date: 20120517
  Receipt Date: 20120504
  Transmission Date: 20120825
  Serious: Yes (Life-Threatening, Other)
  Sender: FDA-Public Use
  Company Number: MPS1-1000685

PATIENT
  Age: 2 Year
  Sex: Male

DRUGS (1)
  1. ALDURAZYME [Suspect]
     Indication: MUCOPOLYSACCHARIDOSIS I
     Dosage: INTRAVENOUS
     Route: 042

REACTIONS (4)
  - ANURIA [None]
  - INFECTION [None]
  - GENERAL PHYSICAL HEALTH DETERIORATION [None]
  - CHOLESTASIS [None]
